FAERS Safety Report 23682610 (Version 1)
Quarter: 2024Q1

REPORT INFORMATION
  Report Type: Spontaneous
  Country: US (occurrence: None)
  Receive Date: 20240327
  Receipt Date: 20240327
  Transmission Date: 20240410
  Serious: Yes (Death, Hospitalization)
  Sender: FDA-Public Use
  Company Number: None

PATIENT
  Age: 80 Year
  Sex: Male

DRUGS (10)
  1. OFEV [Suspect]
     Active Substance: NINTEDANIB
     Indication: Interstitial lung disease
     Dosage: FREQUENCY : DAILY;?
     Route: 048
     Dates: start: 20190723
  2. TRAZODONE [Concomitant]
     Active Substance: TRAZODONE HYDROCHLORIDE
  3. OMEPRAZOLE [Concomitant]
  4. HYDROMORPHONE [Concomitant]
     Active Substance: HYDROMORPHONE
  5. FUROSEMIDE [Concomitant]
  6. TYLENOL [Concomitant]
     Active Substance: ACETAMINOPHEN
  7. BISACODYL [Concomitant]
     Active Substance: BISACODYL
  8. ATROPINE OHT DROP [Concomitant]
  9. HALDOL [Concomitant]
  10. LACTULOSE [Concomitant]

REACTIONS (3)
  - Hepatic encephalopathy [None]
  - Hepatorenal syndrome [None]
  - Hospice care [None]

NARRATIVE: CASE EVENT DATE: 20230413
